FAERS Safety Report 17906156 (Version 2)
Quarter: 2020Q3

REPORT INFORMATION
  Report Type: Spontaneous
  Country: FR (occurrence: FR)
  Receive Date: 20200617
  Receipt Date: 20200825
  Transmission Date: 20201103
  Serious: Yes (Death)
  Sender: FDA-Public Use
  Company Number: FR-ACCORD-185543

PATIENT
  Age: 83 Year
  Sex: Male

DRUGS (6)
  1. FLUOROURACILE ACCORD [Suspect]
     Active Substance: FLUOROURACIL
     Indication: COLORECTAL CANCER
     Dosage: 8 TREATMENT
     Route: 042
     Dates: start: 20200121, end: 20200505
  2. OXALIPLATINE ACCORD [Suspect]
     Active Substance: OXALIPLATIN
     Indication: COLORECTAL CANCER
     Dosage: 8 TREATMENT
     Route: 042
     Dates: start: 20200121, end: 20200505
  3. LEVOFOLINATE ZENTIVA [Suspect]
     Active Substance: LEVOLEUCOVORIN CALCIUM
     Indication: COLORECTAL CANCER
     Dosage: 8 TREATMENT
     Route: 042
     Dates: start: 20190902, end: 20200505
  4. LEVOFOLINATE ZENTIVA [Suspect]
     Active Substance: LEVOLEUCOVORIN CALCIUM
     Indication: COLORECTAL CANCER
     Dosage: 8 TREATMENT
     Route: 042
     Dates: start: 20200121, end: 20200505
  5. OXALIPLATINE ACCORD [Suspect]
     Active Substance: OXALIPLATIN
     Indication: COLORECTAL CANCER
     Dosage: 8 TREATMENT
     Route: 042
     Dates: start: 20190902, end: 20200505
  6. FLUOROURACILE ACCORD [Suspect]
     Active Substance: FLUOROURACIL
     Indication: COLORECTAL CANCER
     Dosage: 8 TREATMENT
     Route: 042
     Dates: start: 20190902, end: 20200505

REACTIONS (2)
  - Condition aggravated [Fatal]
  - Pulmonary fibrosis [Fatal]
